FAERS Safety Report 24428314 (Version 1)
Quarter: 2024Q4

REPORT INFORMATION
  Report Type: Spontaneous
  Country: CN (occurrence: CN)
  Receive Date: 20241011
  Receipt Date: 20241011
  Transmission Date: 20250114
  Serious: Yes (Disabling)
  Sender: BAYER
  Company Number: CN-BAYER-2024A145082

PATIENT
  Age: 40 Year
  Sex: Female
  Weight: 53 kg

DRUGS (1)
  1. YASMIN [Suspect]
     Active Substance: DROSPIRENONE\ETHINYL ESTRADIOL
     Indication: Abnormal uterine bleeding
     Dosage: 3 MG, BID
     Route: 048
     Dates: start: 20240908, end: 20240909

REACTIONS (7)
  - Nausea [Recovered/Resolved]
  - Eructation [Recovered/Resolved]
  - Vomiting [Recovered/Resolved]
  - Chest discomfort [Recovered/Resolved]
  - Palpitations [Recovered/Resolved]
  - Tachycardia [Recovered/Resolved]
  - Off label use [None]

NARRATIVE: CASE EVENT DATE: 20240908
